FAERS Safety Report 18401955 (Version 1)
Quarter: 2020Q4

REPORT INFORMATION
  Report Type: Spontaneous
  Country: NL (occurrence: NL)
  Receive Date: 20201019
  Receipt Date: 20201019
  Transmission Date: 20210114
  Serious: Yes (Other)
  Sender: FDA-Public Use
  Company Number: NL-SHIRE-NL202033433

PATIENT

DRUGS (1)
  1. CUVITRU [Suspect]
     Active Substance: HUMAN IMMUNOGLOBULIN G
     Indication: HYPOGAMMAGLOBULINAEMIA
     Dosage: 15 MILLILITER, 1X/WEEK
     Route: 065
     Dates: start: 20180914

REACTIONS (5)
  - Muscular weakness [Not Recovered/Not Resolved]
  - Pneumonia [Not Recovered/Not Resolved]
  - Paralysis [Not Recovered/Not Resolved]
  - Sepsis [Not Recovered/Not Resolved]
  - Cataract [Not Recovered/Not Resolved]

NARRATIVE: CASE EVENT DATE: 20200801
